FAERS Safety Report 24193503 (Version 1)
Quarter: 2024Q3

REPORT INFORMATION
  Report Type: Spontaneous
  Country: LK (occurrence: LK)
  Receive Date: 20240809
  Receipt Date: 20240809
  Transmission Date: 20241017
  Serious: Yes (Other)
  Sender: AJANTA PHARMA
  Company Number: LK-AJANTA-2024AJA00139

PATIENT
  Age: 53 Year
  Sex: Female

DRUGS (1)
  1. DOXYCYCLINE HYCLATE [Suspect]
     Active Substance: DOXYCYCLINE HYCLATE
     Indication: Filariasis lymphatic
     Route: 048

REACTIONS (1)
  - Hepatic encephalopathy [Unknown]
